FAERS Safety Report 9410192 (Version 2)
Quarter: 2013Q3

REPORT INFORMATION
  Report Type: Spontaneous
  Country: JP (occurrence: JP)
  Receive Date: 20130719
  Receipt Date: 20130808
  Transmission Date: 20140515
  Serious: Yes (Hospitalization)
  Sender: FDA-Public Use
  Company Number: JP-NAPPMUNDI-GBR-2013-0015022

PATIENT
  Age: 72 Year
  Sex: Male

DRUGS (9)
  1. OXYCODONE HCL PR TABLET [Suspect]
     Indication: CANCER PAIN
     Dosage: 10 MG, DAILY
     Route: 048
     Dates: start: 20130702, end: 20130705
  2. NOVAMIN /00013301/ [Suspect]
     Indication: NAUSEA
     Dosage: 15 MG, DAILY
     Route: 048
     Dates: start: 20130702, end: 20130718
  3. NOVAMIN /00013301/ [Suspect]
     Indication: VOMITING
  4. MAGMITT [Suspect]
     Dosage: 1500 MG, DAILY
     Route: 048
     Dates: start: 20130702, end: 20130718
  5. CELECOX [Concomitant]
     Indication: BACK PAIN
     Dosage: UNK
     Route: 048
     Dates: start: 20130613, end: 20130718
  6. CYTOTEC [Concomitant]
     Indication: PROPHYLAXIS AGAINST GASTROINTESTINAL ULCER
     Dosage: 800 MG, DAILY
     Route: 048
     Dates: start: 20130613, end: 20130718
  7. RINDERON                           /00008501/ [Concomitant]
     Indication: GENERAL PHYSICAL HEALTH DETERIORATION
     Dosage: 2 MG, DAILY
     Route: 048
     Dates: start: 20130625, end: 20130718
  8. THYRADIN [Concomitant]
     Indication: HYPOTHYROIDISM
     Dosage: 50 MCG, DAILY
     Route: 048
  9. BFLUID [Concomitant]
     Indication: NUTRITIONAL CONDITION ABNORMAL
     Dosage: 1500 ML, DAILY
     Dates: start: 20130701

REACTIONS (1)
  - Rash erythematous [Recovering/Resolving]
